FAERS Safety Report 5307725-4 (Version None)
Quarter: 2007Q2

REPORT INFORMATION
  Report Type: 
  Country: None (occurrence: None)
  Receive Date: 20070425
  Receipt Date: 20070418
  Transmission Date: 20071010
  Serious: Yes (Life-Threatening, Disabling)
  Sender: FDA-Public Use
  Company Number: US-MERCK-0704USA03916

PATIENT
  Age: 68 Year
  Sex: Male
  Weight: 99 kg

DRUGS (10)
  1. JANUVIA [Suspect]
     Indication: DIABETES MELLITUS NON-INSULIN-DEPENDENT
     Route: 048
     Dates: start: 20061031, end: 20070331
  2. ACTOS [Concomitant]
     Route: 065
  3. PRECOSE [Concomitant]
     Route: 065
  4. LIPITOR [Concomitant]
     Route: 065
  5. PROPYLTHIOURACIL [Concomitant]
     Route: 065
  6. DOXAZOSIN MESYLATE [Concomitant]
     Route: 065
  7. VITAMIN D (UNSPECIFIED) [Concomitant]
     Route: 065
  8. ALTACE [Concomitant]
     Route: 065
  9. STARLIX [Concomitant]
     Route: 065
  10. TRENTAL [Concomitant]
     Route: 065

REACTIONS (2)
  - BLOOD 25-HYDROXYCHOLECALCIFEROL DECREASED [None]
  - RENAL FAILURE [None]
